FAERS Safety Report 6085871-8 (Version None)
Quarter: 2009Q1

REPORT INFORMATION
  Report Type: 
  Country: None (occurrence: None)
  Receive Date: 20090220
  Receipt Date: 20090218
  Transmission Date: 20090719
  Serious: Yes (Hospitalization)
  Sender: FDA-Public Use
  Company Number: B0560235A

PATIENT
  Age: 57 Year
  Sex: Female

DRUGS (5)
  1. AUGMENTIN '125' [Suspect]
     Indication: DRUG USE FOR UNKNOWN INDICATION
     Route: 048
     Dates: start: 20080905, end: 20080907
  2. OMEPRAZOLE [Concomitant]
     Route: 048
  3. IRBESARTAN [Concomitant]
     Route: 048
     Dates: start: 20080811, end: 20080911
  4. PYOSTACINE [Concomitant]
     Route: 065
     Dates: start: 20080908, end: 20080912
  5. ANTI-INFLAMMATORY AGENT (UNSPECIFIED) [Concomitant]
     Route: 065

REACTIONS (14)
  - CHEILITIS [None]
  - CYTOLYTIC HEPATITIS [None]
  - DERMATITIS BULLOUS [None]
  - DRUG HYPERSENSITIVITY [None]
  - GENITAL EROSION [None]
  - HEPATIC FUNCTION ABNORMAL [None]
  - MUCOSAL EROSION [None]
  - PALATAL DISORDER [None]
  - PRURIGO [None]
  - PURPURA [None]
  - PYREXIA [None]
  - RASH GENERALISED [None]
  - RASH PUSTULAR [None]
  - TOXIC SKIN ERUPTION [None]
